FAERS Safety Report 5447417-4 (Version None)
Quarter: 2007Q3

REPORT INFORMATION
  Report Type: 
  Country: None (occurrence: None)
  Receive Date: 20070910
  Receipt Date: 20070830
  Transmission Date: 20080115
  Serious: Yes (Other)
  Sender: FDA-Public Use
  Company Number: US-AMGEN-US239219

PATIENT
  Sex: Male

DRUGS (9)
  1. SENSIPAR [Suspect]
     Indication: HYPERPARATHYROIDISM SECONDARY
     Route: 048
     Dates: start: 20070510, end: 20070524
  2. NORVASC [Concomitant]
  3. LEVOTHYROXINE SODIUM [Concomitant]
  4. VITAMINS [Concomitant]
  5. SENOKOT [Concomitant]
  6. NPH ILETIN II [Concomitant]
  7. FOSRENOL [Concomitant]
  8. AVAPRO [Concomitant]
  9. ZEMPLAR [Concomitant]

REACTIONS (1)
  - RASH PRURITIC [None]
